FAERS Safety Report 16995116 (Version 2)
Quarter: 2019Q4

REPORT INFORMATION
  Report Type: Report from Study
  Country: FR (occurrence: FR)
  Receive Date: 20191105
  Receipt Date: 20191119
  Transmission Date: 20200122
  Serious: Yes (Death, Other)
  Sender: FDA-Public Use
  Company Number: FR-JAZZ-2019-FR-015144

PATIENT

DRUGS (1)
  1. DEFITELIO [Suspect]
     Active Substance: DEFIBROTIDE SODIUM
     Indication: VENOOCCLUSIVE DISEASE
     Dosage: 25 MG/KG/DAY
     Route: 065
     Dates: start: 20160925, end: 20160925

REACTIONS (5)
  - Infection [Fatal]
  - Intentional product use issue [Unknown]
  - Multiple organ dysfunction syndrome [Fatal]
  - Acute graft versus host disease [Unknown]
  - Haemorrhagic disorder [Unknown]

NARRATIVE: CASE EVENT DATE: 20160925
